FAERS Safety Report 7933758-5 (Version None)
Quarter: 2011Q4

REPORT INFORMATION
  Report Type: 
  Country: None (occurrence: None)
  Receive Date: 20111118
  Receipt Date: 20111103
  Transmission Date: 20120403
  Serious: Yes (Life-Threatening, Hospitalization)
  Sender: FDA-Public Use
  Company Number: 2011AP002450

PATIENT
  Age: 5 Hour
  Sex: Male

DRUGS (1)
  1. CITALOPRAM HYDROBROMIDE [Suspect]
     Indication: DEPRESSION
     Dosage: 40 MG; QD; TRPL
     Route: 064

REACTIONS (3)
  - EXPOSURE DURING BREAST FEEDING [None]
  - CYANOSIS NEONATAL [None]
  - SOMNAMBULISM [None]
